FAERS Safety Report 6518393-8 (Version None)
Quarter: 2009Q4

REPORT INFORMATION
  Report Type: 
  Country: None (occurrence: None)
  Receive Date: 20091225
  Receipt Date: 20091216
  Transmission Date: 20100525
  Serious: Yes (Other)
  Sender: FDA-Public Use
  Company Number: DK-ELI_LILLY_AND_COMPANY-DK200912003664

PATIENT
  Sex: Female

DRUGS (5)
  1. FORTEO [Suspect]
     Indication: OSTEOPOROSIS
     Dosage: 20 UG, UNKNOWN
     Route: 065
     Dates: start: 20080219, end: 20080801
  2. SPIRON [Concomitant]
     Indication: LIVER DISORDER
     Dosage: 300 MG, 2/D
     Route: 065
  3. FURIX [Concomitant]
     Indication: LIVER DISORDER
     Dosage: 150 MG, 2/D
     Route: 065
  4. PROPAL [Concomitant]
     Indication: CARDIAC DISORDER
     Dosage: UNK, UNKNOWN
     Route: 065
  5. CONTALGIN [Concomitant]
     Indication: PAIN
     Dosage: 30 MG, 2/D
     Route: 065

REACTIONS (1)
  - BREAST CANCER [None]
